FAERS Safety Report 20068862 (Version 1)
Quarter: 2021Q4

REPORT INFORMATION
  Report Type: Spontaneous
  Country: US (occurrence: US)
  Receive Date: 20211115
  Receipt Date: 20211115
  Transmission Date: 20220303
  Serious: No
  Sender: FDA-Public Use
  Company Number: US-BEH-2021138174

PATIENT
  Sex: Male

DRUGS (2)
  1. HIZENTRA [Suspect]
     Active Substance: HUMAN IMMUNOGLOBULIN G
     Indication: Allogenic bone marrow transplantation therapy
     Dosage: 4 GRAM, QW
     Route: 058
     Dates: start: 20161111
  2. HIZENTRA [Suspect]
     Active Substance: HUMAN IMMUNOGLOBULIN G
     Indication: Crohn^s disease
     Dosage: 3 GRAM, QW
     Route: 058
     Dates: start: 20161111

REACTIONS (3)
  - Infection [Unknown]
  - No adverse event [Unknown]
  - Off label use [Unknown]
